FAERS Safety Report 7816127-8 (Version None)
Quarter: 2011Q4

REPORT INFORMATION
  Report Type: 
  Country: None (occurrence: None)
  Receive Date: 20111015
  Receipt Date: 20110922
  Transmission Date: 20120403
  Serious: Yes (Hospitalization)
  Sender: FDA-Public Use
  Company Number: US-ROCHE-1000892

PATIENT
  Sex: Male

DRUGS (1)
  1. ACTIVASE [Suspect]
     Indication: PULMONARY EMBOLISM
     Dosage: 15 MG BOLUS +85 MG INFUSION OVER 2
     Route: 040

REACTIONS (5)
  - BLOODY DISCHARGE [None]
  - BLOOD URINE PRESENT [None]
  - HAEMATOCRIT DECREASED [None]
  - RESPIRATORY DISORDER [None]
  - HAEMOGLOBIN DECREASED [None]
